FAERS Safety Report 6479575-7 (Version None)
Quarter: 2009Q4

REPORT INFORMATION
  Report Type: 
  Country: None (occurrence: None)
  Receive Date: 20091207
  Receipt Date: 20091207
  Transmission Date: 20100525
  Serious: Yes (Life-Threatening, Other)
  Sender: FDA-Public Use
  Company Number: None

PATIENT
  Age: 5 Year
  Sex: Male
  Weight: 14.9687 kg

DRUGS (2)
  1. DELSYM [Suspect]
     Indication: COUGH
     Dosage: 1/2 TSP 12HRS PO
     Route: 048
     Dates: start: 20091124, end: 20091124
  2. DELSYM [Suspect]
     Indication: COUGH
     Dosage: 1/2 TSP 12HRS PO
     Route: 048
     Dates: start: 20091125, end: 20091125

REACTIONS (4)
  - CONVULSION [None]
  - DOCUMENTED HYPERSENSITIVITY TO ADMINISTERED DRUG [None]
  - PRODUCT OUTER PACKAGING ISSUE [None]
  - VOMITING [None]
